FAERS Safety Report 7283617-9 (Version None)
Quarter: 2011Q1

REPORT INFORMATION
  Report Type: 
  Country: None (occurrence: None)
  Receive Date: 20110209
  Receipt Date: 20110131
  Transmission Date: 20110831
  Serious: Yes (Other)
  Sender: FDA-Public Use
  Company Number: B0697870A

PATIENT
  Age: 72 Year
  Sex: Female

DRUGS (2)
  1. OSELTAMIVIR PHOSPHATE [Concomitant]
     Route: 048
  2. VALTREX [Suspect]
     Indication: HERPES ZOSTER
     Route: 048

REACTIONS (4)
  - CSF CELL COUNT INCREASED [None]
  - ALTERED STATE OF CONSCIOUSNESS [None]
  - CSF PROTEIN INCREASED [None]
  - ENCEPHALOPATHY [None]
